FAERS Safety Report 12262681 (Version 1)
Quarter: 2016Q2

REPORT INFORMATION
  Report Type: Spontaneous
  Country: US (occurrence: US)
  Receive Date: 20160413
  Receipt Date: 20160413
  Transmission Date: 20160815
  Serious: No
  Sender: FDA-Public Use
  Company Number: US-BAUSCH-BL-2015-009273

PATIENT
  Age: 62 Year
  Sex: Female

DRUGS (1)
  1. ARESTIN [Suspect]
     Active Substance: MINOCYCLINE HYDROCHLORIDE
     Indication: DENTAL CARE
     Dates: start: 20150218, end: 20150218

REACTIONS (2)
  - Pain [Unknown]
  - Dental discomfort [Unknown]

NARRATIVE: CASE EVENT DATE: 20150218
